FAERS Safety Report 18855697 (Version 1)
Quarter: 2021Q1

REPORT INFORMATION
  Report Type: Spontaneous
  Country: US (occurrence: US)
  Receive Date: 20210205
  Receipt Date: 20210205
  Transmission Date: 20210420
  Serious: Yes (Death)
  Sender: FDA-Public Use
  Company Number: US-CUMBERLAND-2021-US-000007

PATIENT
  Age: 31 Year
  Sex: Male

DRUGS (2)
  1. ACETADOTE [Suspect]
     Active Substance: ACETYLCYSTEINE
     Route: 042
  2. DEFEROXAMINE [Suspect]
     Active Substance: DEFEROXAMINE MESYLATE
     Route: 042

REACTIONS (2)
  - Drug ineffective [Fatal]
  - Hepatic failure [Fatal]
